FAERS Safety Report 5338067-9 (Version None)
Quarter: 2007Q2

REPORT INFORMATION
  Report Type: 
  Country: None (occurrence: None)
  Receive Date: 20070530
  Receipt Date: 20070525
  Transmission Date: 20071010
  Serious: Yes (Death, Hospitalization)
  Sender: FDA-Public Use
  Company Number: GB-JNJFOC-20070500265

PATIENT
  Age: 62 Year
  Sex: Male

DRUGS (5)
  1. RISPERDAL CONSTA [Suspect]
     Indication: DRUG USE FOR UNKNOWN INDICATION
     Route: 030
  2. QUETIAPINE FUMARATE [Concomitant]
     Indication: DRUG USE FOR UNKNOWN INDICATION
  3. DEPAKOTE [Concomitant]
     Indication: DRUG USE FOR UNKNOWN INDICATION
  4. SERTRALINE [Concomitant]
     Indication: DRUG USE FOR UNKNOWN INDICATION
  5. PROCYCLADINE [Concomitant]
     Indication: DRUG USE FOR UNKNOWN INDICATION

REACTIONS (3)
  - DEATH [None]
  - DYSSTASIA [None]
  - PARKINSONISM [None]
